FAERS Safety Report 23414232 (Version 1)
Quarter: 2024Q1

REPORT INFORMATION
  Report Type: Spontaneous
  Country: FR (occurrence: FR)
  Receive Date: 20240118
  Receipt Date: 20240118
  Transmission Date: 20240410
  Serious: Yes (Hospitalization, Other)
  Sender: FDA-Public Use
  Company Number: FR-CPL-003943

PATIENT
  Age: 19 Year
  Sex: Female

DRUGS (1)
  1. VENLAFAXINE [Suspect]
     Active Substance: VENLAFAXINE HYDROCHLORIDE

REACTIONS (5)
  - Suicide attempt [Unknown]
  - Toxicity to various agents [Unknown]
  - Ventricular dysfunction [Unknown]
  - Cardiac arrest [Unknown]
  - Intentional overdose [Unknown]
